FAERS Safety Report 9050527 (Version 1)
Quarter: 2013Q1

REPORT INFORMATION
  Report Type: Spontaneous
  Country: ES (occurrence: ES)
  Receive Date: 20130205
  Receipt Date: 20130205
  Transmission Date: 20140127
  Serious: Yes (Other)
  Sender: FDA-Public Use
  Company Number: PHHY2013ES009701

PATIENT
  Age: 63 Year
  Sex: Male

DRUGS (3)
  1. SINTROM [Suspect]
     Dosage: 4 MG, UNK
     Route: 048
     Dates: start: 2010
  2. LOSARTAN [Suspect]
     Indication: HYPERTENSION
     Dosage: UNK UKN, UNK
     Route: 048
     Dates: start: 20120801, end: 20120901
  3. FORTZAAR [Concomitant]
     Indication: HYPERTENSION
     Dosage: UNK UKN, UNK
     Route: 048
     Dates: start: 2011, end: 20120801

REACTIONS (1)
  - International normalised ratio fluctuation [Recovered/Resolved]
